FAERS Safety Report 19890746 (Version 1)
Quarter: 2021Q3

REPORT INFORMATION
  Report Type: Spontaneous
  Country: US (occurrence: US)
  Receive Date: 20210927
  Receipt Date: 20210927
  Transmission Date: 20211014
  Serious: Yes (Other)
  Sender: FDA-Public Use
  Company Number: US-ROCHE-2874316

PATIENT
  Age: 77 Year
  Sex: Female
  Weight: 83.81 kg

DRUGS (17)
  1. ASPIRIN. [Concomitant]
     Active Substance: ASPIRIN
  2. CRESTOR [Concomitant]
     Active Substance: ROSUVASTATIN CALCIUM
  3. IMODIUM [Concomitant]
     Active Substance: LOPERAMIDE HYDROCHLORIDE
  4. ESBRIET [Suspect]
     Active Substance: PIRFENIDONE
     Indication: IDIOPATHIC PULMONARY FIBROSIS
     Route: 048
     Dates: start: 202106
  5. CLINDAMYCIN. [Concomitant]
     Active Substance: CLINDAMYCIN
  6. AMITRIPTYLIN [Concomitant]
     Active Substance: AMITRIPTYLINE
  7. HYDROCHLOROTH [Concomitant]
     Active Substance: HYDROCHLOROTHIAZIDE
  8. VITAMIN C [Concomitant]
     Active Substance: ASCORBIC ACID
  9. ESBRIET [Suspect]
     Active Substance: PIRFENIDONE
     Indication: IDIOPATHIC PULMONARY FIBROSIS
     Dosage: ON 14/JUL/2021, DOSE OF PIRFENIDONE WAS WITHDRAWN.?FREQUENCY: TAKES 3 TABLETS BY MOUTH 3 TIMES A DAY
     Route: 048
     Dates: start: 20210606, end: 20210714
  10. VANCOMYCIN HYDROCHLORIDE. [Concomitant]
     Active Substance: VANCOMYCIN HYDROCHLORIDE
  11. MILK OF MAGNESIA [Concomitant]
     Active Substance: MAGNESIUM HYDROXIDE
  12. ESBRIET [Suspect]
     Active Substance: PIRFENIDONE
     Indication: IDIOPATHIC PULMONARY FIBROSIS
     Route: 048
  13. NEURONTIN [Concomitant]
     Active Substance: GABAPENTIN
  14. NORCO [Concomitant]
     Active Substance: ACETAMINOPHEN\HYDROCODONE BITARTRATE
     Dosage: FORM STRENGHTH:10?325 MG
  15. PROTONIX [Concomitant]
     Active Substance: PANTOPRAZOLE SODIUM
  16. PROZAC [Concomitant]
     Active Substance: FLUOXETINE HYDROCHLORIDE
  17. VITAMIN B2 [Concomitant]
     Active Substance: RIBOFLAVIN

REACTIONS (6)
  - Skin burning sensation [Unknown]
  - Diarrhoea [Recovering/Resolving]
  - Fall [Unknown]
  - Feeding disorder [Unknown]
  - Oral mucosal exfoliation [Not Recovered/Not Resolved]
  - Facial bones fracture [Unknown]

NARRATIVE: CASE EVENT DATE: 20210707
